FAERS Safety Report 10019608 (Version 3)
Quarter: 2014Q2

REPORT INFORMATION
  Report Type: Spontaneous
  Country: JP (occurrence: JP)
  Receive Date: 20140318
  Receipt Date: 20140509
  Transmission Date: 20141212
  Serious: Yes (Death, Life-Threatening, Other)
  Sender: FDA-Public Use
  Company Number: JP-PFIZER INC-2014076291

PATIENT
  Age: 85 Year
  Sex: Female

DRUGS (16)
  1. NOVASTAN [Suspect]
     Dosage: UNK
     Route: 041
     Dates: start: 20140113, end: 20140114
  2. UNASYN-S [Suspect]
     Indication: PROPHYLAXIS
     Dosage: UNK
     Route: 051
     Dates: start: 20140113
  3. RADICUT [Suspect]
     Indication: CEREBRAL INFARCTION
     Dosage: 30 MG, 2X/DAY
     Route: 041
     Dates: start: 20140113, end: 20140114
  4. RADICUT [Suspect]
     Dosage: 30 MG, 2X/DAY
     Route: 041
     Dates: start: 20140115, end: 20140117
  5. NICHOLIN [Concomitant]
     Dosage: UNK
     Route: 041
     Dates: start: 20140113
  6. SOLCOSERYL [Concomitant]
     Dosage: UNK
     Route: 041
     Dates: start: 20140113
  7. GASTER [Concomitant]
     Dosage: UNK
     Dates: start: 20140113
  8. TANATRIL [Concomitant]
     Dosage: 5 MG, 1X/DAY
     Route: 048
     Dates: end: 20140118
  9. ATELEC [Concomitant]
     Dosage: 10 DF, 1X/DAY
     Route: 048
     Dates: end: 20140118
  10. TAKEPRON [Concomitant]
     Dosage: 15 DF, 1X/DAY
     Route: 048
     Dates: end: 20140118
  11. JANUVIA [Concomitant]
     Dosage: 100 TABLETS (100 DOSAGE FORMS,MORNING)
     Route: 048
     Dates: end: 20140118
  12. OPALMON [Concomitant]
     Dosage: 15 MCG (5 MCG,AFTER MEAL)
     Route: 048
     Dates: end: 20140118
  13. ANPLAG [Concomitant]
     Dosage: 300 MG (100 MG,AFTER MEAL)
     Route: 048
     Dates: end: 20140118
  14. MAGNESIUM OXIDE [Concomitant]
     Dosage: 1.5 GM (0.5 GM,AFTER MEAL)
     Route: 048
     Dates: end: 20140118
  15. LIPITOR [Concomitant]
     Dosage: 10 DOSAGE FORMS,EVENING
     Route: 048
     Dates: end: 20140118
  16. AMARYL [Concomitant]
     Dosage: 2 DOSAGE FORMS,MORNING AND EVENING
     Route: 048
     Dates: end: 20140118

REACTIONS (7)
  - Septic shock [Fatal]
  - Disseminated intravascular coagulation [Not Recovered/Not Resolved]
  - Haemorrhagic cerebral infarction [Unknown]
  - Sepsis [Not Recovered/Not Resolved]
  - Pyrexia [Not Recovered/Not Resolved]
  - Pyrexia [Recovered/Resolved]
  - Cytology abnormal [Unknown]
